FAERS Safety Report 17699511 (Version 1)
Quarter: 2020Q2

REPORT INFORMATION
  Report Type: Spontaneous
  Country: US (occurrence: US)
  Receive Date: 20200423
  Receipt Date: 20200423
  Transmission Date: 20200714
  Serious: No
  Sender: FDA-Public Use
  Company Number: US-JNJFOC-20200427483

PATIENT
  Age: 65 Year
  Sex: Male

DRUGS (8)
  1. MELOXICAM. [Concomitant]
     Active Substance: MELOXICAM
  2. GABAPENTIN. [Concomitant]
     Active Substance: GABAPENTIN
  3. MONTELUKAST [Concomitant]
     Active Substance: MONTELUKAST SODIUM
  4. CYCLOBENZAPRINE. [Concomitant]
     Active Substance: CYCLOBENZAPRINE
  5. NIZORAL [Suspect]
     Active Substance: KETOCONAZOLE
     Indication: SKIN DISORDER
     Route: 061
     Dates: start: 20200312, end: 20200314
  6. TRAMADOL. [Concomitant]
     Active Substance: TRAMADOL
  7. PANTOPRAZOLE [Concomitant]
     Active Substance: PANTOPRAZOLE
  8. LEVOCETIRIZINE [Concomitant]
     Active Substance: LEVOCETIRIZINE

REACTIONS (2)
  - Pain of skin [Recovered/Resolved]
  - Rash papular [Recovered/Resolved]

NARRATIVE: CASE EVENT DATE: 20200312
